FAERS Safety Report 6144379-1 (Version None)
Quarter: 2009Q2

REPORT INFORMATION
  Report Type: 
  Country: None (occurrence: None)
  Receive Date: 20090406
  Receipt Date: 20090403
  Transmission Date: 20091009
  Serious: No
  Sender: FDA-Public Use
  Company Number: US-B.I. PHARMACEUTICALS,INC./RIDGEFIELD-2009-BP-04156BP

PATIENT
  Age: 83 Year
  Sex: Female

DRUGS (7)
  1. FLOMAX [Suspect]
     Indication: DYSURIA
     Dosage: .4MG
     Route: 048
     Dates: start: 20090318
  2. REMERON [Concomitant]
     Indication: DEPRESSION
  3. SYNTHROID [Concomitant]
     Indication: HYPOTHYROIDISM
  4. ENALAPRIL [Concomitant]
     Indication: HYPERTENSION
  5. METHOTREXATE [Concomitant]
     Indication: ARTHRITIS
  6. PREMARIN [Concomitant]
  7. SPIRIVA [Concomitant]
     Indication: CHRONIC OBSTRUCTIVE PULMONARY DISEASE

REACTIONS (1)
  - NOCTURIA [None]
